FAERS Safety Report 7291170-9 (Version None)
Quarter: 2011Q1

REPORT INFORMATION
  Report Type: 
  Country: None (occurrence: None)
  Receive Date: 20110202
  Receipt Date: 20110117
  Transmission Date: 20110831
  Serious: Yes (Other)
  Sender: FDA-Public Use
  Company Number: GER/GER/11/0017159

PATIENT
  Age: 81 Year
  Sex: Female
  Weight: 58.2 kg

DRUGS (4)
  1. TRIMIPRAMINE MALEATE [Concomitant]
  2. CITALOPRAM (CITALOPRAM) [Suspect]
     Indication: MAJOR DEPRESSION
     Dosage: 40 MG, ORAL
     Route: 048
  3. MIRTAZAPINE [Concomitant]
  4. QUILONUM (LITHIUM CARBONATE) [Concomitant]

REACTIONS (3)
  - FALL [None]
  - FOREARM FRACTURE [None]
  - COMPLEX REGIONAL PAIN SYNDROME [None]
